FAERS Safety Report 5242361-X (Version None)
Quarter: 2007Q1

REPORT INFORMATION
  Report Type: 
  Country: None (occurrence: None)
  Receive Date: 20070214
  Receipt Date: 20070131
  Transmission Date: 20070707
  Serious: Yes (Hospitalization)
  Sender: FDA-Public Use
  Company Number: 2007BI002349

PATIENT
  Age: 49 Year
  Sex: Female

DRUGS (1)
  1. AVONEX [Suspect]
     Indication: MULTIPLE SCLEROSIS
     Dosage: 30 UG;QW; IM
     Route: 030
     Dates: start: 20010901

REACTIONS (6)
  - ANGINA PECTORIS [None]
  - ARTERIAL RUPTURE [None]
  - ARTHRALGIA [None]
  - DIABETES MELLITUS [None]
  - HYPERTENSION [None]
  - INFLUENZA LIKE ILLNESS [None]
